FAERS Safety Report 13554940 (Version 5)
Quarter: 2019Q3

REPORT INFORMATION
  Report Type: Report from Study
  Country: US (occurrence: US)
  Receive Date: 20170517
  Receipt Date: 20190722
  Transmission Date: 20191004
  Serious: Yes (Other)
  Sender: FDA-Public Use
  Company Number: PHHY2016US176134

PATIENT
  Age: 41 Year
  Sex: Female

DRUGS (3)
  1. GILENYA [Suspect]
     Active Substance: FINGOLIMOD HYDROCHLORIDE
     Indication: MULTIPLE SCLEROSIS
     Dosage: UNK, QD
     Route: 048
  2. VITA-D [Concomitant]
     Indication: VITAMIN D DEFICIENCY
     Dosage: UNK
     Route: 065
     Dates: start: 20160804
  3. QVAR [Concomitant]
     Active Substance: BECLOMETHASONE DIPROPIONATE
     Indication: ASTHMA
     Dosage: UNK
     Route: 065
     Dates: start: 20160804

REACTIONS (7)
  - Lymphopenia [Unknown]
  - Headache [Unknown]
  - Optic neuritis [Recovered/Resolved]
  - Blepharospasm [Unknown]
  - Visual impairment [Recovered/Resolved]
  - Urinary tract infection [Recovered/Resolved]
  - Migraine with aura [Unknown]

NARRATIVE: CASE EVENT DATE: 20160601
